FAERS Safety Report 17293097 (Version 9)
Quarter: 2021Q4

REPORT INFORMATION
  Report Type: Spontaneous
  Country: GB (occurrence: GB)
  Receive Date: 20200121
  Receipt Date: 20211122
  Transmission Date: 20220303
  Serious: Yes (Other)
  Sender: FDA-Public Use
  Company Number: GB-TAKEDA-2019TUS072526

PATIENT
  Sex: Male

DRUGS (13)
  1. AMLODIPINE MESYLATE [Suspect]
     Active Substance: AMLODIPINE MESYLATE
     Indication: Product used for unknown indication
     Dosage: UNK UNK, UNK?, THERAPY START DATE: ASKU
     Route: 065
  2. VEDOLIZUMAB [Suspect]
     Active Substance: VEDOLIZUMAB
     Indication: Inflammatory bowel disease
     Dosage: UNK, 300 MG
     Route: 042
     Dates: start: 20160808, end: 20170817
  3. CHOLECALCIFEROL [Suspect]
     Active Substance: CHOLECALCIFEROL
     Indication: Vitamin D deficiency
     Route: 048
  4. BISOPROLOL [Concomitant]
     Active Substance: BISOPROLOL
     Indication: Cardiac disorder
     Dosage: 1.25 MILLIGRAM DAILY; THERAPY START AND END DATE: ASKU
     Route: 048
  5. BISOPROLOL [Concomitant]
     Active Substance: BISOPROLOL
     Dosage: 125 MILLIGRAM DAILY;
     Route: 048
  6. FLUOROURACIL [Concomitant]
     Active Substance: FLUOROURACIL
     Indication: Skin lesion
     Dosage: THERAPY START AND END DATE: ASKU
     Route: 061
  7. FUCIDIN H [Concomitant]
     Indication: Skin lesion
     Dosage: THERAPY START AND END DATE: ASKU, UNK
     Route: 061
  8. ATORVASTATIN [Concomitant]
     Active Substance: ATORVASTATIN
     Indication: Blood cholesterol
     Dosage: 40MG
     Route: 048
  9. CHOLECALCIFEROL [Concomitant]
     Active Substance: CHOLECALCIFEROL
     Indication: Vitamin D deficiency
     Route: 048
  10. LANSOPRAZOLE [Concomitant]
     Active Substance: LANSOPRAZOLE
     Dosage: 30 MILLIGRAM DAILY; 15 MILLIGRAM, BID
     Route: 048
  11. LOSARTAN [Concomitant]
     Active Substance: LOSARTAN
     Indication: Cardiac disorder
     Dosage: 50 MILLIGRAM DAILY; 50 MILLIGRAM, QD
     Route: 065
  12. METFORMIN [Concomitant]
     Active Substance: METFORMIN HYDROCHLORIDE
     Indication: Diabetes mellitus
     Dosage: 1000 MILLIGRAM DAILY; 1000 MILLIGRAM, QD
     Route: 048
  13. RIVAROXABAN [Concomitant]
     Active Substance: RIVAROXABAN
     Indication: Transient ischaemic attack
     Dosage: 20 MILLIGRAM DAILY; 20 MILLIGRAM, QD
     Route: 048
     Dates: start: 20150119

REACTIONS (2)
  - Basal cell carcinoma [Not Recovered/Not Resolved]
  - Skin lesion [Recovered/Resolved]

NARRATIVE: CASE EVENT DATE: 20171101
